FAERS Safety Report 5512216-1 (Version None)
Quarter: 2007Q4

REPORT INFORMATION
  Report Type: 
  Country: None (occurrence: None)
  Receive Date: 20071112
  Receipt Date: 20071101
  Transmission Date: 20080405
  Serious: Yes (Hospitalization, Other)
  Sender: FDA-Public Use
  Company Number: PHBS2007BR18354

PATIENT
  Sex: Male

DRUGS (3)
  1. LEPONEX [Suspect]
     Indication: SCHIZOPHRENIA
     Route: 048
  2. LEPONEX [Suspect]
     Dosage: 0.5 DF, UNK
     Route: 048
  3. AMPLICTIL [Concomitant]
     Indication: SLEEP DISORDER

REACTIONS (1)
  - INTENTIONAL SELF-INJURY [None]
